FAERS Safety Report 20858696 (Version 1)
Quarter: 2022Q2

REPORT INFORMATION
  Report Type: Spontaneous
  Country: US (occurrence: US)
  Receive Date: 20220522
  Receipt Date: 20220522
  Transmission Date: 20220721
  Serious: Yes (Other)
  Sender: FDA-Public Use
  Company Number: US-NOVAST LABORATORIES INC.-2022NOV000259

PATIENT

DRUGS (1)
  1. NIFEDIPINE [Suspect]
     Active Substance: NIFEDIPINE
     Indication: Hypertension
     Dosage: 2 TABLETS AT AN INTERVAL OF 12 HOURS
     Route: 065
     Dates: start: 202010, end: 202111

REACTIONS (2)
  - Cerebrovascular accident [Recovered/Resolved]
  - Therapeutic product effect decreased [Unknown]
